FAERS Safety Report 17629747 (Version 1)
Quarter: 2020Q2

REPORT INFORMATION
  Report Type: Spontaneous
  Country: US (occurrence: US)
  Receive Date: 20200406
  Receipt Date: 20200406
  Transmission Date: 20200713
  Serious: Yes (Hospitalization, Other)
  Sender: FDA-Public Use
  Company Number: US-MYLANLABS-2020M1033594

PATIENT
  Sex: Female
  Weight: 66 kg

DRUGS (5)
  1. METOPROLOL TARTRATE TABLETS USP [Suspect]
     Active Substance: METOPROLOL TARTRATE
     Dosage: 25 MILLIGRAM, TID (3 TIMES DAILY)
     Route: 048
  2. COUMADIN [Concomitant]
     Active Substance: WARFARIN SODIUM
     Indication: PRODUCT USED FOR UNKNOWN INDICATION
     Dosage: UNK
  3. METOPROLOL TARTRATE TABLETS USP [Suspect]
     Active Substance: METOPROLOL TARTRATE
     Dosage: 25 MILLIGRAM, TID (3 TIMES DAILY)
     Route: 048
  4. METOPROLOL TARTRATE TABLETS USP [Suspect]
     Active Substance: METOPROLOL TARTRATE
     Dosage: 25 MILLIGRAM, BID (2 TIMES DAILY)
     Route: 048
  5. METOPROLOL TARTRATE TABLETS USP [Suspect]
     Active Substance: METOPROLOL TARTRATE
     Indication: HYPERTENSION
     Dosage: 25 MILLIGRAM, BID (2 TIMES DAILY)
     Route: 048

REACTIONS (6)
  - Incorrect dose administered [Recovered/Resolved]
  - Drug ineffective [Recovering/Resolving]
  - Heart rate decreased [Recovered/Resolved]
  - Blood pressure increased [Recovering/Resolving]
  - Hemiplegic migraine [Recovered/Resolved]
  - Expired product administered [Unknown]
